FAERS Safety Report 8189152-8 (Version None)
Quarter: 2012Q1

REPORT INFORMATION
  Report Type: 
  Country: None (occurrence: None)
  Receive Date: 20120306
  Receipt Date: 20120306
  Transmission Date: 20120608
  Serious: Yes (Disabling)
  Sender: FDA-Public Use
  Company Number: None

PATIENT
  Sex: Male
  Weight: 99.7913 kg

DRUGS (2)
  1. NEXIUM [Suspect]
     Indication: DYSPEPSIA
     Dosage: 1 A DAY EVERY DAY
  2. PREVACID [Suspect]
     Indication: DYSPEPSIA
     Dosage: 1 A DAY EVERY DAY

REACTIONS (2)
  - DRUG INEFFECTIVE [None]
  - IMPAIRED HEALING [None]
